FAERS Safety Report 5265411-3 (Version None)
Quarter: 2007Q1

REPORT INFORMATION
  Report Type: 
  Country: None (occurrence: None)
  Receive Date: 20070314
  Receipt Date: 20070302
  Transmission Date: 20070707
  Serious: Yes (Hospitalization)
  Sender: FDA-Public Use
  Company Number: FR-PFIZER INC-2007017207

PATIENT
  Sex: Male
  Weight: 70 kg

DRUGS (4)
  1. TAHOR [Suspect]
     Route: 048
     Dates: start: 20050101, end: 20070101
  2. CELECOXIB [Concomitant]
  3. METHOTREXATE [Concomitant]
  4. CANDESARTAN CILEXETIL [Concomitant]

REACTIONS (3)
  - MYALGIA [None]
  - NODULE [None]
  - TENDONITIS [None]
